FAERS Safety Report 5943437-1 (Version None)
Quarter: 2008Q4

REPORT INFORMATION
  Report Type: 
  Country: None (occurrence: None)
  Receive Date: 20081105
  Receipt Date: 20081105
  Transmission Date: 20090506
  Serious: Yes (Death, Life-Threatening, Hospitalization)
  Sender: FDA-Public Use
  Company Number: None

PATIENT
  Age: 84 Year
  Sex: Female
  Weight: 68 kg

DRUGS (2)
  1. WARFARIN SODIUM [Suspect]
     Indication: ATRIAL FIBRILLATION
     Dosage: WARFARIN 5MG DAILY PO
     Route: 048
     Dates: start: 20081013, end: 20081014
  2. WARFARIN SODIUM [Suspect]
     Dosage: WARFARIN 10MG ONCE PO
     Route: 048
     Dates: start: 20081015, end: 20081015

REACTIONS (14)
  - ABDOMINAL COMPARTMENT SYNDROME [None]
  - ABDOMINAL PAIN [None]
  - CARDIAC ARREST [None]
  - CARDIOVASCULAR INSUFFICIENCY [None]
  - COAGULOPATHY [None]
  - HAEMORRHAGE [None]
  - HYPOTENSION [None]
  - INTERNATIONAL NORMALISED RATIO DECREASED [None]
  - INTERNATIONAL NORMALISED RATIO INCREASED [None]
  - MULTI-ORGAN FAILURE [None]
  - RENAL FAILURE [None]
  - RESPIRATORY FAILURE [None]
  - SEPSIS [None]
  - SHOCK [None]
